FAERS Safety Report 19808105 (Version 1)
Quarter: 2021Q3

REPORT INFORMATION
  Report Type: Spontaneous
  Country: DE (occurrence: DE)
  Receive Date: 20210908
  Receipt Date: 20210908
  Transmission Date: 20211014
  Serious: Yes (Hospitalization)
  Sender: FDA-Public Use
  Company Number: DE-MYLANLABS-2021M1059724

PATIENT
  Age: 59 Year
  Sex: Male

DRUGS (11)
  1. PHENPROCOUMON [Concomitant]
     Active Substance: PHENPROCOUMON
     Dosage: 3 MILLIGRAM, TABLETTEN
  2. HYDROCHLOROTHIAZID [Concomitant]
     Active Substance: HYDROCHLOROTHIAZIDE
     Dosage: 25 MILLIGRAM, 1?0?0?0, TABLETTEN
  3. METFORMIN [Concomitant]
     Active Substance: METFORMIN HYDROCHLORIDE
     Dosage: 1000 MILLIGRAM (1?0?1?0, TABLETTEN)
  4. VIANI [Concomitant]
     Active Substance: FLUTICASONE PROPIONATE\SALMETEROL XINAFOATE
     Dosage: 250/50 ?G, 1?0?1?0, PULVER ZUR INHALATION
     Route: 055
  5. BISOPROLOL [Concomitant]
     Active Substance: BISOPROLOL
     Dosage: 10 MILLIGRAM,  1?0?1?0, TABLETTEN
  6. CISPLATIN. [Suspect]
     Active Substance: CISPLATIN
     Indication: PRODUCT USED FOR UNKNOWN INDICATION
     Dosage: 45 MILLIGRAM, LAST ONE ON 02022021
     Route: 065
     Dates: end: 20210202
  7. SEEBRI BREEZHALER [Concomitant]
     Active Substance: GLYCOPYRROLATE
     Dosage: 50 MICROGRAM, 1?0?0?0, HARTKAPSEL MIT PULVER ZUR INHALATION
     Route: 055
  8. AMLODIPIN                          /00972401/ [Concomitant]
     Active Substance: AMLODIPINE BESYLATE
     Dosage: 5 MILLIGRAM, (1?0?1?0) TABLETTEN
  9. RAMIPRIL. [Concomitant]
     Active Substance: RAMIPRIL
     Dosage: 5 MILLIGRAM, 1?0?1?0, TABLETTEN
  10. ATORVASTATIN [Concomitant]
     Active Substance: ATORVASTATIN
     Dosage: 40 MILLIGRAM, 0?0?1?0, TABLETTEN
  11. MOXONIDIN [Concomitant]
     Active Substance: MOXONIDINE
     Dosage: 0.2 MILLIGRAM, (1?0?0?0, TABLETTEN)

REACTIONS (5)
  - Fatigue [Unknown]
  - Electrolyte imbalance [Unknown]
  - Paraesthesia [Unknown]
  - Renal function test abnormal [Unknown]
  - Renal failure [Unknown]
